FAERS Safety Report 21960091 (Version 4)
Quarter: 2025Q1

REPORT INFORMATION
  Report Type: Report from Study
  Country: JP (occurrence: JP)
  Receive Date: 20230207
  Receipt Date: 20250326
  Transmission Date: 20250408
  Serious: Yes (Other)
  Sender: TAKEDA
  Company Number: JP-TAKEDA-2023TJP001181

PATIENT
  Sex: Male
  Weight: 72 kg

DRUGS (3)
  1. RURIOCTOCOG ALFA PEGOL [Suspect]
     Active Substance: RURIOCTOCOG ALFA PEGOL
     Indication: Factor VIII deficiency
  2. RURIOCTOCOG ALFA PEGOL [Suspect]
     Active Substance: RURIOCTOCOG ALFA PEGOL
     Indication: Haemorrhage prophylaxis
     Dosage: 4000 INTERNATIONAL UNIT, QOD
     Dates: start: 20191206
  3. RURIOCTOCOG ALFA PEGOL [Suspect]
     Active Substance: RURIOCTOCOG ALFA PEGOL
     Indication: Haemostasis

REACTIONS (7)
  - Haemarthrosis [Recovered/Resolved]
  - Muscle haemorrhage [Unknown]
  - Muscle strain [Recovered/Resolved]
  - Stress fracture [Recovered/Resolved]
  - Prescribed overdose [Unknown]
  - Inappropriate schedule of product administration [Unknown]
  - COVID-19 [Unknown]
